FAERS Safety Report 15932301 (Version 1)
Quarter: 2019Q1

REPORT INFORMATION
  Report Type: Spontaneous
  Country: US (occurrence: US)
  Receive Date: 20190117
  Receipt Date: 20190117
  Transmission Date: 20190417
  Serious: No
  Sender: FDA-Public Use
  Company Number: None

PATIENT

DRUGS (1)
  1. PIOGLITAZONE HCL 30 MG TAB/GENERIC FOR ACTOS 30 MG TABLET [Suspect]
     Active Substance: PIOGLITAZONE HYDROCHLORIDE
     Indication: DIABETES MELLITUS
     Dosage: ?          QUANTITY:30 MG MILLIGRAM(S);?
     Route: 048
     Dates: start: 201808, end: 20181220

REACTIONS (3)
  - Cardiac flutter [None]
  - Heart rate increased [None]
  - Dyspnoea [None]

NARRATIVE: CASE EVENT DATE: 201809
